FAERS Safety Report 8211706-0 (Version None)
Quarter: 2012Q1

REPORT INFORMATION
  Report Type: 
  Country: None (occurrence: None)
  Receive Date: 20120315
  Receipt Date: 20120306
  Transmission Date: 20120608
  Serious: Yes (Death)
  Sender: FDA-Public Use
  Company Number: CA-PFIZER INC-2012067139

PATIENT

DRUGS (1)
  1. MS CONTIN [Suspect]
     Route: 065

REACTIONS (2)
  - DRUG PRESCRIBING ERROR [None]
  - OVERDOSE [None]
